FAERS Safety Report 16581669 (Version 1)
Quarter: 2019Q3

REPORT INFORMATION
  Report Type: Spontaneous
  Country: TH (occurrence: TH)
  Receive Date: 20190716
  Receipt Date: 20190716
  Transmission Date: 20191004
  Serious: Yes (Death)
  Sender: FDA-Public Use
  Company Number: TH-BAXTER-2019BAX013749

PATIENT
  Age: 77 Year
  Sex: Male

DRUGS (1)
  1. DIANEAL PD-2 WITH DEXTROSE [Suspect]
     Active Substance: CALCIUM CHLORIDE\DEXTROSE\MAGNESIUM CHLORIDE\SODIUM CHLORIDE\SODIUM LACTATE
     Indication: END STAGE RENAL DISEASE
     Dosage: 2 BAGS OF 5L
     Route: 033
     Dates: start: 20180410, end: 20190621

REACTIONS (3)
  - Fluid overload [Fatal]
  - Oedema [Unknown]
  - Cough [Unknown]

NARRATIVE: CASE EVENT DATE: 201906
